FAERS Safety Report 25206740 (Version 1)
Quarter: 2025Q2

REPORT INFORMATION
  Report Type: Spontaneous
  Country: US (occurrence: US)
  Receive Date: 20250417
  Receipt Date: 20250417
  Transmission Date: 20250716
  Serious: Yes (Death, Other)
  Sender: ASTELLAS
  Company Number: US-ASTELLAS-2025-AER-020924

PATIENT
  Age: 37 Year
  Sex: Male

DRUGS (2)
  1. TACROLIMUS [Suspect]
     Active Substance: TACROLIMUS
     Indication: Renal and pancreas transplant
     Route: 065
  2. PREDNISONE [Suspect]
     Active Substance: PREDNISONE
     Indication: Pancreas transplant
     Route: 065

REACTIONS (4)
  - Adenocarcinoma pancreas [Fatal]
  - Tumour lysis syndrome [Fatal]
  - Deep vein thrombosis [Fatal]
  - Off label use [Unknown]
